FAERS Safety Report 18124328 (Version 1)
Quarter: 2020Q3

REPORT INFORMATION
  Report Type: Spontaneous
  Country: GB (occurrence: GB)
  Receive Date: 20200807
  Receipt Date: 20200807
  Transmission Date: 20201103
  Serious: Yes (Other)
  Sender: FDA-Public Use
  Company Number: GB-TEVA-2020-GB-1810169

PATIENT
  Age: 44 Year
  Sex: Male
  Weight: 91.16 kg

DRUGS (2)
  1. TRAMULIEF SR [Concomitant]
  2. CARBAMAZEPINE. [Suspect]
     Active Substance: CARBAMAZEPINE
     Indication: NEURALGIA
     Dosage: 1TO 4 PER DAY
     Route: 048
     Dates: start: 20200708, end: 20200714

REACTIONS (5)
  - Penile rash [Unknown]
  - Pruritus genital [Unknown]
  - Penile discomfort [Unknown]
  - Expired product administered [Unknown]
  - Penile haemorrhage [Unknown]
